FAERS Safety Report 7282581-6 (Version None)
Quarter: 2011Q1

REPORT INFORMATION
  Report Type: 
  Country: None (occurrence: None)
  Receive Date: 20110209
  Receipt Date: 20110203
  Transmission Date: 20110831
  Serious: Yes (Death, Other)
  Sender: FDA-Public Use
  Company Number: US-PFIZER INC-2010110276

PATIENT
  Sex: Male

DRUGS (3)
  1. LEXAPRO [Concomitant]
     Indication: DEPRESSION
     Dosage: UNK
     Dates: start: 20070201, end: 20080901
  2. CHANTIX [Suspect]
     Indication: SMOKING CESSATION THERAPY
     Dosage: UNK
     Dates: start: 20070617, end: 20080901
  3. LEXAPRO [Concomitant]
     Indication: SUICIDAL IDEATION

REACTIONS (2)
  - DEPRESSION [None]
  - COMPLETED SUICIDE [None]
